FAERS Safety Report 7487210-4 (Version None)
Quarter: 2011Q2

REPORT INFORMATION
  Report Type: 
  Country: None (occurrence: None)
  Receive Date: 20110518
  Receipt Date: 20110407
  Transmission Date: 20111010
  Serious: Yes (Hospitalization, Other)
  Sender: FDA-Public Use
  Company Number: US-BAYER-201020671NA

PATIENT
  Age: 27 Year
  Sex: Female
  Weight: 73 kg

DRUGS (8)
  1. NITROL [Concomitant]
  2. YAZ [Suspect]
     Indication: CONTRACEPTION
     Route: 048
     Dates: start: 20070101, end: 20071015
  3. COLACE [Concomitant]
  4. ATIVAN [Concomitant]
     Indication: ANXIETY
     Dosage: UNK
     Dates: start: 20070101, end: 20080101
  5. LEXAPRO [Concomitant]
     Indication: DEPRESSION
     Dosage: UNK
     Dates: start: 20070101, end: 20080101
  6. PERCOCET [Concomitant]
  7. TRAZODONE HCL [Concomitant]
     Dosage: UNK
     Dates: start: 20070701
  8. YASMIN [Suspect]
     Indication: CONTRACEPTION
     Dosage: UNK UNK, UNK
     Route: 048
     Dates: start: 20070821, end: 20071001

REACTIONS (6)
  - PARESIS [None]
  - FACIAL PARESIS [None]
  - BRAIN STEM INFARCTION [None]
  - DYSARTHRIA [None]
  - PARAESTHESIA [None]
  - HYPOAESTHESIA [None]
